FAERS Safety Report 5534626-9 (Version None)
Quarter: 2007Q4

REPORT INFORMATION
  Report Type: 
  Country: None (occurrence: None)
  Receive Date: 20071205
  Receipt Date: 20071130
  Transmission Date: 20080405
  Serious: Yes (Other)
  Sender: FDA-Public Use
  Company Number: JP-ASTRAZENECA-2007AP07708

PATIENT
  Age: 83 Year
  Sex: Male

DRUGS (2)
  1. OMEPRAL [Suspect]
     Indication: GASTROINTESTINAL HAEMORRHAGE
     Route: 048
     Dates: start: 20071122, end: 20071124
  2. OMEPRAL [Suspect]
     Route: 042
     Dates: start: 20071116, end: 20071121

REACTIONS (1)
  - TORSADE DE POINTES [None]
